FAERS Safety Report 11491045 (Version 1)
Quarter: 2015Q3

REPORT INFORMATION
  Report Type: Spontaneous
  Country: US (occurrence: US)
  Receive Date: 20150910
  Receipt Date: 20150910
  Transmission Date: 20151125
  Serious: No
  Sender: FDA-Public Use
  Company Number: US-JNJFOC-20150810361

PATIENT
  Sex: Female

DRUGS (6)
  1. LEVAQUIN [Suspect]
     Active Substance: LEVOFLOXACIN
     Indication: SINUSITIS
     Dosage: 7 DAY COURSE
     Route: 048
     Dates: start: 20060512
  2. LEVAQUIN [Suspect]
     Active Substance: LEVOFLOXACIN
     Indication: CARDIAC OPERATION
     Dosage: 7 DAY COURSE
     Route: 048
     Dates: start: 20060512
  3. AVELOX [Suspect]
     Active Substance: MOXIFLOXACIN HYDROCHLORIDE
     Indication: PRODUCT USED FOR UNKNOWN INDICATION
     Route: 065
  4. LEVAQUIN [Suspect]
     Active Substance: LEVOFLOXACIN
     Indication: SINUSITIS
     Route: 048
     Dates: start: 20060419
  5. LEVAQUIN [Suspect]
     Active Substance: LEVOFLOXACIN
     Indication: CARDIAC OPERATION
     Route: 042
     Dates: start: 200605
  6. LEVAQUIN [Suspect]
     Active Substance: LEVOFLOXACIN
     Indication: CARDIAC OPERATION
     Route: 048
     Dates: start: 20060419

REACTIONS (3)
  - Cognitive disorder [Unknown]
  - Neuropathy peripheral [Not Recovered/Not Resolved]
  - Memory impairment [Unknown]
